FAERS Safety Report 4586590-7 (Version None)
Quarter: 2005Q1

REPORT INFORMATION
  Report Type: 
  Country: None (occurrence: None)
  Receive Date: 20050218
  Receipt Date: 20040517
  Transmission Date: 20050727
  Serious: No
  Sender: FDA-Public Use
  Company Number: US-BRISTOL-MYERS SQUIBB COMPANY-12588703

PATIENT
  Age: 32 Year
  Sex: Female

DRUGS (5)
  1. TAXOL [Suspect]
     Indication: BREAST CANCER
     Dosage: 3 HOUR INFUSION RATE
     Route: 042
     Dates: start: 20040514, end: 20040514
  2. ONDANSETRON [Concomitant]
     Route: 048
  3. DEXAMETHASONE [Concomitant]
     Route: 042
  4. DIPHENHYDRAMINE HCL [Concomitant]
     Route: 042
  5. FAMOTIDINE [Concomitant]
     Route: 042

REACTIONS (1)
  - RASH PAPULAR [None]
